FAERS Safety Report 7522978-X (Version None)
Quarter: 2011Q2

REPORT INFORMATION
  Report Type: 
  Country: None (occurrence: None)
  Receive Date: 20110525
  Receipt Date: 20110429
  Transmission Date: 20111010
  Serious: Yes (Other)
  Sender: FDA-Public Use
  Company Number: 20109338

PATIENT
  Sex: Female

DRUGS (1)
  1. LIORESAL [Suspect]
     Indication: MUSCLE SPASTICITY
     Dosage: MCG, DAILY, INTRATHECAL
     Route: 037

REACTIONS (11)
  - IRRITABILITY [None]
  - INTRACRANIAL HYPOTENSION [None]
  - DRUG WITHDRAWAL SYNDROME [None]
  - NAUSEA [None]
  - DEVICE LEAKAGE [None]
  - VOMITING [None]
  - DEVICE FAILURE [None]
  - PAIN [None]
  - RENAL FAILURE [None]
  - MUSCLE SPASTICITY [None]
  - PRURITUS [None]
